FAERS Safety Report 6303583-X (Version None)
Quarter: 2009Q3

REPORT INFORMATION
  Report Type: 
  Country: None (occurrence: None)
  Receive Date: 20090807
  Receipt Date: 20090807
  Transmission Date: 20100115
  Serious: Yes (Other)
  Sender: FDA-Public Use
  Company Number: None

PATIENT
  Age: 47 Year
  Sex: Male
  Weight: 91.6266 kg

DRUGS (2)
  1. DIPRIVAN [Suspect]
     Indication: ANAESTHESIA
     Dosage: IV BOLUS
     Route: 040
     Dates: start: 20090731, end: 20090731
  2. KENALOG [Suspect]
     Indication: SPINAL OSTEOARTHRITIS
     Dosage: 8X/MONTH INTRADISCAL
     Route: 024
     Dates: start: 20090710, end: 20090724

REACTIONS (3)
  - CARPAL TUNNEL DECOMPRESSION [None]
  - DRUG INTERACTION [None]
  - RETROGRADE AMNESIA [None]
